FAERS Safety Report 6651277-3 (Version None)
Quarter: 2010Q1

REPORT INFORMATION
  Report Type: 
  Country: None (occurrence: None)
  Receive Date: 20100325
  Receipt Date: 20091118
  Transmission Date: 20100710
  Serious: No
  Sender: FDA-Public Use
  Company Number: US-AMGEN-KDL375411

PATIENT
  Sex: Female

DRUGS (3)
  1. NEULASTA [Suspect]
     Indication: CHEMOTHERAPY
     Dates: start: 20091105
  2. TOPOTECAN [Concomitant]
  3. CISPLATIN [Concomitant]

REACTIONS (2)
  - BACK PAIN [None]
  - PELVIC PAIN [None]
